FAERS Safety Report 4900729-2 (Version None)
Quarter: 2006Q1

REPORT INFORMATION
  Report Type: 
  Country: None (occurrence: None)
  Receive Date: 20060201
  Receipt Date: 20060118
  Transmission Date: 20060701
  Serious: Yes (Hospitalization)
  Sender: FDA-Public Use
  Company Number: 2005JP002354

PATIENT
  Age: 66 Year
  Sex: Female
  Weight: 53.2 kg

DRUGS (13)
  1. TACROLIMUS [Suspect]
     Indication: MYASTHENIA GRAVIS
     Dosage: 1 MG, ORAL
     Route: 048
     Dates: start: 20040909, end: 20040910
  2. PREDNISOLONE [Suspect]
     Indication: MYASTHENIA GRAVIS
     Dosage: 17.5 MG, UID/QD, ORAL; SEE IMAGE
     Route: 048
     Dates: end: 20041020
  3. PREDNISOLONE [Suspect]
     Indication: MYASTHENIA GRAVIS
     Dosage: 17.5 MG, UID/QD, ORAL; SEE IMAGE
     Route: 048
     Dates: start: 20041021, end: 20041106
  4. PREDNISOLONE [Suspect]
     Indication: MYASTHENIA GRAVIS
     Dosage: 17.5 MG, UID/QD, ORAL; SEE IMAGE
     Route: 048
     Dates: start: 20041107, end: 20041109
  5. PREDNISOLONE [Suspect]
     Indication: MYASTHENIA GRAVIS
     Dosage: 17.5 MG, UID/QD, ORAL; SEE IMAGE
     Route: 048
     Dates: start: 20041110
  6. MYTELASE [Concomitant]
  7. MARZULENE S   (LEVOGLUTAMIDE, SODIUM GUALENATE) [Concomitant]
  8. SELBEX (TEPRENONE) [Concomitant]
  9. BIOFERMIN (STREPTOCOCCUS FAECALIS, LACTOBACILLUS ACIDOPHILUS, BACILLUS [Concomitant]
  10. LOCHOL TABLET [Concomitant]
  11. ALFAROL (ALFACALCIDOL) [Concomitant]
  12. LORELCO (PROBUCOL) TABLET [Concomitant]
  13. BASEN               (VOGLIBOSE) [Concomitant]

REACTIONS (5)
  - ATRIOVENTRICULAR BLOCK SECOND DEGREE [None]
  - DRUG INEFFECTIVE [None]
  - NAUSEA [None]
  - PALPITATIONS [None]
  - VOMITING [None]
